FAERS Safety Report 21082010 (Version 5)
Quarter: 2023Q1

REPORT INFORMATION
  Report Type: Spontaneous
  Country: JP (occurrence: JP)
  Receive Date: 20220714
  Receipt Date: 20230306
  Transmission Date: 20230417
  Serious: Yes (Death, Other)
  Sender: FDA-Public Use
  Company Number: JP-CHEMOCENTRYX, INC.-2022JPCCXI0215

PATIENT

DRUGS (39)
  1. TAVNEOS [Suspect]
     Active Substance: AVACOPAN
     Indication: Microscopic polyangiitis
     Dosage: 60 MG (DAILY)
     Route: 048
     Dates: start: 20220607, end: 20220619
  2. TAVNEOS [Suspect]
     Active Substance: AVACOPAN
     Dosage: 60 MG (DAILY)
     Route: 048
     Dates: start: 20220621, end: 20220907
  3. TAVNEOS [Suspect]
     Active Substance: AVACOPAN
     Dosage: 60 MG (30 MG,2 IN 1 D)
     Route: 048
     Dates: start: 20220611, end: 20220617
  4. RITUXIMAB [Suspect]
     Active Substance: RITUXIMAB
     Indication: Microscopic polyangiitis
     Dosage: 700 MG
     Route: 065
     Dates: start: 20190226, end: 20190226
  5. RITUXIMAB [Suspect]
     Active Substance: RITUXIMAB
     Dosage: 700 MG
     Route: 065
     Dates: start: 20190326, end: 20190326
  6. RITUXIMAB [Suspect]
     Active Substance: RITUXIMAB
     Dosage: 600 MG
     Route: 065
     Dates: start: 20190412, end: 20190412
  7. RITUXIMAB [Suspect]
     Active Substance: RITUXIMAB
     Dosage: 600 MG
     Route: 065
     Dates: start: 20190419, end: 20190419
  8. RITUXIMAB [Suspect]
     Active Substance: RITUXIMAB
     Dosage: 600 MG
     Route: 065
     Dates: start: 20190426, end: 20190426
  9. RITUXIMAB [Suspect]
     Active Substance: RITUXIMAB
     Dosage: 600 MG
     Route: 065
     Dates: start: 20190503, end: 20190503
  10. RITUXIMAB [Suspect]
     Active Substance: RITUXIMAB
     Dosage: 600 MG
     Route: 065
     Dates: start: 20200207, end: 20200207
  11. RITUXIMAB [Suspect]
     Active Substance: RITUXIMAB
     Dosage: 600 MG
     Route: 065
     Dates: start: 20200226, end: 20200226
  12. RITUXIMAB [Suspect]
     Active Substance: RITUXIMAB
     Dosage: 600 MG
     Route: 065
     Dates: start: 20200306, end: 20200306
  13. RITUXIMAB [Suspect]
     Active Substance: RITUXIMAB
     Dosage: 600 MG
     Route: 065
     Dates: start: 20200313, end: 20200313
  14. RITUXIMAB [Suspect]
     Active Substance: RITUXIMAB
     Dosage: 600 MG
     Route: 065
     Dates: start: 20201120, end: 20201120
  15. RITUXIMAB [Suspect]
     Active Substance: RITUXIMAB
     Dosage: 600 MG
     Route: 065
     Dates: start: 20201130, end: 20201130
  16. RITUXIMAB [Suspect]
     Active Substance: RITUXIMAB
     Dosage: 600 MG
     Route: 065
     Dates: start: 20210421, end: 20210421
  17. RITUXIMAB [Suspect]
     Active Substance: RITUXIMAB
     Dosage: 600 MG
     Route: 065
     Dates: start: 20210517, end: 20210517
  18. RITUXIMAB [Suspect]
     Active Substance: RITUXIMAB
     Dosage: 600 MG
     Route: 065
     Dates: start: 20210524, end: 20210524
  19. RITUXIMAB [Suspect]
     Active Substance: RITUXIMAB
     Dosage: 600 MG
     Route: 065
     Dates: start: 20210531, end: 20210531
  20. RITUXIMAB [Suspect]
     Active Substance: RITUXIMAB
     Dosage: 600 MG
     Route: 065
     Dates: start: 20220329, end: 20220329
  21. RITUXIMAB [Suspect]
     Active Substance: RITUXIMAB
     Dosage: 600 MG
     Route: 065
     Dates: start: 20220411, end: 20220411
  22. RITUXIMAB [Suspect]
     Active Substance: RITUXIMAB
     Dosage: 600 MG
     Route: 065
     Dates: start: 20220425, end: 20220425
  23. RITUXIMAB [Suspect]
     Active Substance: RITUXIMAB
     Dosage: 600 MG
     Route: 065
     Dates: start: 20220513, end: 20220513
  24. PREDNISOLONE [Suspect]
     Active Substance: PREDNISOLONE
     Indication: Microscopic polyangiitis
     Dosage: 60 MG
     Route: 065
     Dates: start: 201902
  25. PREDNISOLONE [Suspect]
     Active Substance: PREDNISOLONE
     Dosage: 60 MG
     Route: 065
     Dates: start: 20220505, end: 20220525
  26. PREDNISOLONE [Suspect]
     Active Substance: PREDNISOLONE
     Dosage: 50 MG
     Route: 065
     Dates: start: 20220526, end: 20220606
  27. PREDNISOLONE [Suspect]
     Active Substance: PREDNISOLONE
     Dosage: 40 MG
     Route: 065
     Dates: start: 20220607, end: 20220614
  28. PREDNISOLONE [Suspect]
     Active Substance: PREDNISOLONE
     Dosage: 30 MG
     Route: 065
     Dates: start: 20220615, end: 20220616
  29. PREDNISOLONE [Suspect]
     Active Substance: PREDNISOLONE
     Dosage: 25 MG
     Route: 065
     Dates: start: 20220617, end: 20220628
  30. PREDNISOLONE [Suspect]
     Active Substance: PREDNISOLONE
     Dosage: 20 MG
     Route: 065
     Dates: start: 20220629, end: 20220719
  31. PREDNISOLONE [Suspect]
     Active Substance: PREDNISOLONE
     Dosage: 17.5 MG
     Route: 065
     Dates: start: 20220720, end: 20220802
  32. PREDNISOLONE [Suspect]
     Active Substance: PREDNISOLONE
     Dosage: 15 MG
     Route: 065
     Dates: start: 20220803, end: 20220819
  33. PREDNISOLONE [Suspect]
     Active Substance: PREDNISOLONE
     Dosage: 12.5 MG
     Route: 065
     Dates: start: 20220820, end: 20220907
  34. ADRENAL [Concomitant]
     Active Substance: EPINEPHRINE
     Indication: Microscopic polyangiitis
     Dosage: 20 MG (20 MG, 1 IN 1 D)
     Route: 065
  35. ADRENAL [Concomitant]
     Active Substance: EPINEPHRINE
     Dosage: 12.5 MG (PER DAY)
     Route: 065
  36. LANSOPRAZOLE [Concomitant]
     Active Substance: LANSOPRAZOLE
     Indication: Product used for unknown indication
     Dosage: 15 MG
     Route: 065
     Dates: start: 20190411, end: 20220907
  37. ONEALFA [Concomitant]
     Active Substance: ALFACALCIDOL
     Indication: Product used for unknown indication
     Dosage: 0.25 MCG
     Route: 065
     Dates: start: 20190619, end: 20220907
  38. ATOVAQUONE [Concomitant]
     Active Substance: ATOVAQUONE
     Indication: Product used for unknown indication
     Dosage: 1500 MG
     Route: 065
     Dates: start: 20190326, end: 20220907
  39. FEBUXOSTAT [Concomitant]
     Active Substance: FEBUXOSTAT
     Indication: Product used for unknown indication
     Dosage: 10 MG
     Route: 065
     Dates: start: 20190722, end: 20220907

REACTIONS (7)
  - Bacteraemia [Fatal]
  - Pyrexia [Fatal]
  - Multiple organ dysfunction syndrome [Unknown]
  - Device related infection [Unknown]
  - Melaena [Recovering/Resolving]
  - Cytomegalovirus viraemia [Unknown]
  - Rectal ulcer [Recovering/Resolving]

NARRATIVE: CASE EVENT DATE: 20220101
